FAERS Safety Report 15343471 (Version 13)
Quarter: 2020Q2

REPORT INFORMATION
  Report Type: Spontaneous
  Country: US (occurrence: US)
  Receive Date: 20180903
  Receipt Date: 20200630
  Transmission Date: 20200713
  Serious: Yes (Hospitalization, Other)
  Sender: FDA-Public Use
  Company Number: US-PFIZER INC-2016369193

PATIENT
  Sex: Female
  Weight: 93 kg

DRUGS (7)
  1. LYRICA [Suspect]
     Active Substance: PREGABALIN
     Indication: PAIN IN EXTREMITY
     Dosage: 50 MG, 3X/DAY
     Route: 048
  2. ALPRAZOLAM. [Concomitant]
     Active Substance: ALPRAZOLAM
     Indication: AGORAPHOBIA
  3. LYRICA [Suspect]
     Active Substance: PREGABALIN
     Indication: NEUROPATHY PERIPHERAL
     Dosage: 50 MG 2X/DAY
     Route: 048
  4. LYRICA [Suspect]
     Active Substance: PREGABALIN
     Dosage: 50 MG
  5. ALPRAZOLAM. [Concomitant]
     Active Substance: ALPRAZOLAM
     Indication: PANIC ATTACK
     Dosage: 1 MG, 4X/DAY
  6. LYRICA [Suspect]
     Active Substance: PREGABALIN
     Indication: HYPOAESTHESIA
     Dosage: 75 MG, 2X/DAY
     Route: 048
  7. LYRICA [Suspect]
     Active Substance: PREGABALIN
     Dosage: 50 MG, 3X/DAY (NOW TAKING IT 3 TIMES PER DAY)
     Route: 048
     Dates: start: 20191226

REACTIONS (13)
  - Neuropathy peripheral [Unknown]
  - Atrial fibrillation [Unknown]
  - Paralysis [Unknown]
  - Lyme disease [Unknown]
  - Drug ineffective [Unknown]
  - Product dispensing error [Unknown]
  - Diverticulitis [Recovered/Resolved]
  - Gait disturbance [Recovered/Resolved]
  - Hip fracture [Unknown]
  - Balance disorder [Unknown]
  - Back pain [Unknown]
  - Arthralgia [Unknown]
  - Muscle spasms [Unknown]
